FAERS Safety Report 4413490-5 (Version None)
Quarter: 2004Q2

REPORT INFORMATION
  Report Type: 
  Country: None (occurrence: None)
  Receive Date: 20040630
  Receipt Date: 20040325
  Transmission Date: 20050107
  Serious: No
  Sender: FDA-Public Use
  Company Number: 04P-163-0254570-00

PATIENT
  Age: 66 Year
  Sex: Female
  Weight: 437.7211 kg

DRUGS (8)
  1. HUMIRA [Suspect]
     Indication: RHEUMATOID ARTHRITIS
     Dosage: 40 MG 1 IN 2 WK SUBCUTANEOUS
     Route: 058
     Dates: start: 20040301
  2. PARACETAMOL [Concomitant]
  3. PREDNISONE TAB [Concomitant]
  4. ASCORBIC ACID [Concomitant]
  5. ERGOCALCIFEROL [Concomitant]
  6. CALCIUM [Concomitant]
  7. GINKGO BILOBA [Concomitant]
  8. COD LIVER OIL [Concomitant]

REACTIONS (1)
  - INJECTION SITE PAIN [None]
